FAERS Safety Report 9753710 (Version 2)
Quarter: 2015Q4

REPORT INFORMATION
  Report Type: Report from Study
  Country: AU (occurrence: AU)
  Receive Date: 20131213
  Receipt Date: 20151113
  Transmission Date: 20160305
  Serious: Yes (Hospitalization)
  Sender: FDA-Public Use
  Company Number: AU-ABBVIE-13P-008-1177466-00

PATIENT
  Age: 59 Year
  Sex: Female
  Weight: 61 kg

DRUGS (3)
  1. QUESTRAN [Concomitant]
     Active Substance: CHOLESTYRAMINE
     Indication: ILEECTOMY
  2. HUMIRA [Suspect]
     Active Substance: ADALIMUMAB
     Indication: CROHN^S DISEASE
     Route: 058
     Dates: end: 20130716
  3. QUESTRAN [Concomitant]
     Active Substance: CHOLESTYRAMINE
     Indication: DIARRHOEA
     Dosage: 1-2
     Route: 048

REACTIONS (6)
  - Intestinal stenosis [Recovered/Resolved]
  - Hospitalisation [Unknown]
  - Abdominal adhesions [Recovered/Resolved]
  - Post procedural infection [Recovering/Resolving]
  - Weight fluctuation [Unknown]
  - Intestinal resection [Recovered/Resolved]

NARRATIVE: CASE EVENT DATE: 201307
